FAERS Safety Report 25920067 (Version 1)
Quarter: 2025Q4

REPORT INFORMATION
  Report Type: Spontaneous
  Country: US (occurrence: None)
  Receive Date: 20251014
  Receipt Date: 20251014
  Transmission Date: 20260117
  Serious: Yes (Other)
  Sender: FDA-CTU
  Company Number: None

PATIENT
  Age: 55 Year
  Sex: Female
  Weight: 169.19 kg

DRUGS (14)
  1. AJOVY [Suspect]
     Active Substance: FREMANEZUMAB-VFRM
     Indication: Migraine
     Dosage: 225 MG  SUBCUTNEOUS
     Route: 058
     Dates: start: 202302
  2. METOPROLOL SUCCINATE [Concomitant]
     Active Substance: METOPROLOL SUCCINATE
  3. DROXIDOPA 100MG CAPSULES [Concomitant]
  4. TYMLOS INJ, 1 PREFILLED PEN [Concomitant]
  5. CLONAZEPAM [Concomitant]
     Active Substance: CLONAZEPAM
  6. AJOVY 225MG/1 .5ML PF AUT INJ 1.5ML [Concomitant]
  7. OZEMPIC 1 MG PER DOSE (1 X4MG PEN) [Concomitant]
  8. BUPROPION XL [Concomitant]
     Active Substance: BUPROPION HYDROCHLORIDE
  9. CETIRIZINE [Concomitant]
     Active Substance: CETIRIZINE HYDROCHLORIDE
  10. DULOXETINE [Concomitant]
     Active Substance: DULOXETINE
  11. ELIOUIS 5MG TABLETS [Concomitant]
  12. LAMOTRIGINE [Concomitant]
     Active Substance: LAMOTRIGINE
  13. NITROGLYCERIN 0.4MG SUB TAB 25S [Concomitant]
  14. ONDANSETRON 4MG TABLETS [Concomitant]

REACTIONS (1)
  - Heart rate increased [None]

NARRATIVE: CASE EVENT DATE: 20251004
